FAERS Safety Report 4479871-9 (Version None)
Quarter: 2004Q3

REPORT INFORMATION
  Report Type: 
  Country: None (occurrence: None)
  Receive Date: 20040923
  Receipt Date: 20040727
  Transmission Date: 20050211
  Serious: No
  Sender: FDA-Public Use
  Company Number: USA040465128

PATIENT
  Age: 71 Year
  Sex: Female

DRUGS (10)
  1. FORTEO [Suspect]
     Indication: OSTEOPOROSIS
     Dates: start: 20040319
  2. BEXTRA [Concomitant]
  3. COLD-EEZE [Concomitant]
  4. FLAXSEED [Concomitant]
  5. CALCIUM [Concomitant]
  6. FLAX SEED OIL [Concomitant]
  7. GLUCOSAMINE [Concomitant]
  8. VITAMIN E [Concomitant]
  9. ASPIRIN [Concomitant]
  10. ZELNORM [Concomitant]

REACTIONS (3)
  - LIP BLISTER [None]
  - NASOPHARYNGITIS [None]
  - SWELLING FACE [None]
